FAERS Safety Report 17262523 (Version 1)
Quarter: 2020Q1

REPORT INFORMATION
  Report Type: Spontaneous
  Country: US (occurrence: US)
  Receive Date: 20200113
  Receipt Date: 20200113
  Transmission Date: 20200409
  Serious: Yes (Death, Hospitalization, Other)
  Sender: FDA-Public Use
  Company Number: US-BAYER-2020-004172

PATIENT
  Age: 14 Year
  Sex: Female

DRUGS (3)
  1. NAPROXEN SODIUM ({= 220 MG) [Suspect]
     Active Substance: NAPROXEN SODIUM
     Dosage: UNK
     Route: 048
  2. IBUPROFEN. [Suspect]
     Active Substance: IBUPROFEN
  3. HYDROXYCHLOROQUINE [Suspect]
     Active Substance: HYDROXYCHLOROQUINE
     Dosage: 6 G, ONCE

REACTIONS (8)
  - Oxygen saturation decreased [None]
  - Mouth haemorrhage [None]
  - Toxicity to various agents [Fatal]
  - Circulatory collapse [None]
  - Dyspnoea [None]
  - Cardiac arrest [Fatal]
  - Hypotension [None]
  - Oral mucosal discolouration [None]
